FAERS Safety Report 10951217 (Version 1)
Quarter: 2015Q1

REPORT INFORMATION
  Report Type: Spontaneous
  Country: US (occurrence: None)
  Receive Date: 20150226
  Receipt Date: 20150226
  Transmission Date: 20150721
  Serious: Yes (Hospitalization)
  Sender: FDA-Public Use
  Company Number: TAP2008Q01017

PATIENT
  Age: 59 Year
  Sex: Male
  Weight: 86.4 kg

DRUGS (16)
  1. SOMA [Concomitant]
     Active Substance: CARISOPRODOL
  2. CYMBALTA [Concomitant]
     Active Substance: DULOXETINE HYDROCHLORIDE
  3. PROTONIX (PANTOPRAZOLE) [Concomitant]
  4. PREVACID [Suspect]
     Active Substance: LANSOPRAZOLE
     Indication: GASTROOESOPHAGEAL REFLUX DISEASE
     Route: 048
     Dates: start: 19981211, end: 2006
  5. HUMARA [Concomitant]
  6. LORTAB 10/500 (PARACETAMOL, HYDROCODONE BITARTRATE) [Concomitant]
  7. ZOCOR [Concomitant]
     Active Substance: SIMVASTATIN
  8. SPIRIVA (TIOTROPIUM BROMIDE) [Concomitant]
  9. FORADIL (FORMOTEROL) [Concomitant]
  10. ASPIRIN (ACETYSALICYLIC ACID) [Concomitant]
  11. BENICAR HCT [Concomitant]
     Active Substance: HYDROCHLOROTHIAZIDE\OLMESARTAN MEDOXOMIL
  12. TOPROL  XL (METOPROLOL SUCCINATE) [Concomitant]
  13. ALBUTEROL INHALER (SALBUTAMOL) [Concomitant]
  14. NORVASC (AMLODIPINE) [Concomitant]
  15. FOLTEX [Concomitant]
  16. NITROLINGUAL PUMP SPRAY (GLYCERYL TRINITRATE) [Concomitant]

REACTIONS (1)
  - Myocardial infarction [None]

NARRATIVE: CASE EVENT DATE: 2003
